FAERS Safety Report 4540380-X (Version None)
Quarter: 2004Q4

REPORT INFORMATION
  Report Type: 
  Country: None (occurrence: None)
  Receive Date: 20041222
  Receipt Date: 20041206
  Transmission Date: 20050328
  Serious: Yes (Hospitalization)
  Sender: FDA-Public Use
  Company Number: DE_041214856

PATIENT
  Age: 85 Year
  Sex: Female
  Weight: 60 kg

DRUGS (7)
  1. YENTREVE (DULOXETINE HYDROCHLORIDE) [Suspect]
     Indication: URINARY INCONTINENCE
     Dates: start: 20041123
  2. MADOPAR [Concomitant]
  3. MADOPAR DEPOT [Concomitant]
  4. ISOKET RETARD (ISOSORBIDE DINITRATE) [Concomitant]
  5. NOVAMINSULFON-RATIOPHARM (METAMIZOLE SODIUM) [Concomitant]
  6. VALORON N [Concomitant]
  7. OMEPRAZOL ^STADA^ (OMEPRAZOLE RATIOPHARM) [Concomitant]

REACTIONS (9)
  - ANOREXIA [None]
  - C-REACTIVE PROTEIN INCREASED [None]
  - CONDITION AGGRAVATED [None]
  - HYPOKINESIA [None]
  - LABORATORY TEST ABNORMAL [None]
  - NAUSEA [None]
  - RED BLOOD CELL SEDIMENTATION RATE INCREASED [None]
  - VOMITING [None]
  - WHITE BLOOD CELL DISORDER [None]
